FAERS Safety Report 9198546 (Version 1)
Quarter: 2013Q1

REPORT INFORMATION
  Report Type: Spontaneous
  Country: US (occurrence: None)
  Receive Date: 20120709
  Receipt Date: 20120709
  Transmission Date: 20140127
  Serious: Yes (Other)
  Sender: FDA-Public Use
  Company Number: PHHY2011US39228

PATIENT
  Age: 63 Year
  Sex: Male
  Weight: 59.5 kg

DRUGS (6)
  1. GLEEVEC (IMATINIB) UNKNOWN [Suspect]
     Indication: CHRONIC MYELOID LEUKAEMIA
     Route: 048
     Dates: start: 20110418, end: 20110519
  2. ASA (ACETYLSALICYLIC ACID) [Concomitant]
  3. ATENOLOL (ATENOLOL) [Concomitant]
  4. CYMBALTA (DULOXETINE HYDROCHLORIDE) [Concomitant]
  5. LANTUS (INSULIN GLARGINE) , 100 U [Concomitant]
  6. LYRICA (PREGABALIN) [Concomitant]

REACTIONS (8)
  - Anaemia [None]
  - Periorbital oedema [None]
  - Weight increased [None]
  - Oedema peripheral [None]
  - Leukocytosis [None]
  - Nausea [None]
  - Diarrhoea [None]
  - Fatigue [None]
